FAERS Safety Report 4994253-9 (Version None)
Quarter: 2006Q2

REPORT INFORMATION
  Report Type: 
  Country: None (occurrence: None)
  Receive Date: 20060503
  Receipt Date: 20060419
  Transmission Date: 20061013
  Serious: Yes (Death)
  Sender: FDA-Public Use
  Company Number: 2006S1000084

PATIENT
  Age: 66 Year
  Sex: Male
  Weight: 97 kg

DRUGS (9)
  1. CUBICIN [Suspect]
     Indication: DEVICE RELATED INFECTION
     Dosage: 400 MG; X1; IV
     Route: 042
  2. CUBICIN [Suspect]
     Indication: STAPHYLOCOCCAL INFECTION
     Dosage: 400 MG; X1; IV
     Route: 042
  3. VANCOMYCIN [Concomitant]
  4. DEXAMETHASONE [Concomitant]
  5. IDARUBICIN HCL [Concomitant]
  6. ISOSORBIDE [Concomitant]
  7. FUROSEMIDE [Concomitant]
  8. SIMVASTATIN [Concomitant]
  9. PANTOPRAZOLE [Concomitant]

REACTIONS (7)
  - CARDIO-RESPIRATORY ARREST [None]
  - CONTUSION [None]
  - ELECTROENCEPHALOGRAM ABNORMAL [None]
  - FALL [None]
  - HEAD INJURY [None]
  - MYOCARDIAL INFARCTION [None]
  - MYOCLONUS [None]
